FAERS Safety Report 12184681 (Version 1)
Quarter: 2016Q1

REPORT INFORMATION
  Report Type: Spontaneous
  Country: US (occurrence: US)
  Receive Date: 20160316
  Receipt Date: 20160316
  Transmission Date: 20160526
  Serious: No
  Sender: FDA-Public Use
  Company Number: US-TAKEDA-2016TUS004172

PATIENT
  Age: 29 Year
  Sex: Female
  Weight: 86.62 kg

DRUGS (4)
  1. CONTRAVE [Suspect]
     Active Substance: BUPROPION HYDROCHLORIDE\NALTREXONE HYDROCHLORIDE
     Dosage: UNK, TID
     Route: 048
     Dates: start: 201602, end: 20160304
  2. CONTRAVE [Suspect]
     Active Substance: BUPROPION HYDROCHLORIDE\NALTREXONE HYDROCHLORIDE
     Indication: OVERWEIGHT
     Dosage: UNK, QD
     Route: 048
     Dates: start: 201602, end: 201602
  3. CONTRAVE [Suspect]
     Active Substance: BUPROPION HYDROCHLORIDE\NALTREXONE HYDROCHLORIDE
     Dosage: UNK, BID
     Route: 048
     Dates: start: 201602, end: 201602
  4. LOSARTAN. [Concomitant]
     Active Substance: LOSARTAN
     Indication: HYPERTENSION
     Dosage: UNK
     Route: 048
     Dates: start: 201602, end: 20160304

REACTIONS (4)
  - Heart rate increased [Unknown]
  - Inappropriate schedule of drug administration [Recovered/Resolved]
  - Cough [Unknown]
  - Flushing [Unknown]

NARRATIVE: CASE EVENT DATE: 201602
